FAERS Safety Report 24671403 (Version 2)
Quarter: 2024Q4

REPORT INFORMATION
  Report Type: Spontaneous
  Country: GB (occurrence: GB)
  Receive Date: 20241127
  Receipt Date: 20241223
  Transmission Date: 20250115
  Serious: Yes (Hospitalization, Other)
  Sender: MYLAN
  Company Number: GB-MYLANLABS-2021M1075377

PATIENT
  Age: 31 Year
  Sex: Male

DRUGS (25)
  1. CLOZARIL [Suspect]
     Active Substance: CLOZAPINE
     Indication: Schizophrenia
     Dosage: UNK
     Route: 048
     Dates: start: 20140908, end: 20211019
  2. CLOZARIL [Suspect]
     Active Substance: CLOZAPINE
     Dosage: UNK, QD (150MG AM, 200MG NOCTE)
     Route: 065
     Dates: start: 20180411
  3. CLOZARIL [Suspect]
     Active Substance: CLOZAPINE
     Dosage: UNK
     Route: 048
     Dates: start: 20241121
  4. PENICILLIN [Concomitant]
     Active Substance: PENICILLIN
     Dosage: UNK
     Route: 065
  5. AMOXICILLIN [Concomitant]
     Active Substance: AMOXICILLIN
     Dosage: 1 DOSAGE FORM, TID (ONE TO BE TAKEN THREE TIMES A DAY,15 CAPSULE)
     Route: 065
     Dates: start: 20170530
  6. AMOXICILLIN [Concomitant]
     Active Substance: AMOXICILLIN
     Dosage: 1 DOSAGE FORM, TID (ONE TO BE TAKEN THREE TIMES A DAY,15 CAPSULE)
     Route: 065
     Dates: start: 20210625
  7. AMOXICILLIN [Concomitant]
     Active Substance: AMOXICILLIN
     Dosage: 1 DOSAGE FORM, TID (ONE TO BE TAKEN THREE TIMES A DAY,15 CAPSULE)
     Route: 065
     Dates: start: 20210721
  8. OTOMIZE EAR SPRAY [Concomitant]
     Dosage: UNK UNK, TID (ONE SPRAY TO BE USED IN THE AFFECTED  EAR(S) THREE TIMES A DAY,5 ML)
     Route: 065
     Dates: start: 20210701
  9. VAXZEVRIA [Concomitant]
     Active Substance: AZD-1222
     Indication: COVID-19 immunisation
     Dosage: UNK UNK, QD (1 DOSE)
     Route: 030
     Dates: start: 20210324, end: 20210324
  10. VAXZEVRIA [Concomitant]
     Active Substance: AZD-1222
     Dosage: UNK UNK, QD (1 DOSE)
     Route: 030
     Dates: start: 20210611, end: 20210611
  11. SILDENAFIL [Concomitant]
     Active Substance: SILDENAFIL
     Dosage: 1 DOSAGE FORM (ONE TO BE TAKEN AS DIRECTED,4 TABLET)
     Route: 065
     Dates: start: 20200706
  12. VALPROIC ACID [Concomitant]
     Active Substance: VALPROIC ACID
     Dosage: 2 DOSAGE FORM, BID (TWO TWICE A DAY,112 TABLET)
     Route: 065
     Dates: start: 20200427
  13. DEPAKOTE [Concomitant]
     Active Substance: DIVALPROEX SODIUM
     Dosage: 4 DOSAGE FORM, BID (FOUR MANE AND FOUR NOCTE,90 TABLET)
     Route: 065
     Dates: start: 20170824
  14. DEPAKOTE [Concomitant]
     Active Substance: DIVALPROEX SODIUM
     Dosage: 1 DOSAGE FORM, BID (ONE TO BE TAKEN  TWICE A DAY,56 TABLET)
     Route: 065
     Dates: start: 20190820
  15. AMISULPRIDE [Concomitant]
     Active Substance: AMISULPRIDE
     Dosage: 2 DOSAGE FORM, BID (TWO TWICE A DAY,120 TABLET)
     Route: 065
     Dates: start: 20190722
  16. SCOPOLAMINE HYDROBROMIDE [Concomitant]
     Active Substance: SCOPOLAMINE HYDROBROMIDE
     Dosage: 2 DOSAGE FORM, TID (2 THREE TIMES A DAY,168 TABLET )
     Route: 065
     Dates: start: 20190103
  17. ATROPINE [Concomitant]
     Active Substance: ATROPINE
     Dosage: 0.5 MILLILITER, PM (0.5ML UNIT DOSE PRESERVATIVE FREE, TO BE TAKEN  SUBLINGUALLY 1ML AT NIGHT.,20 UN
     Route: 065
     Dates: start: 20170626
  18. ATROPINE [Concomitant]
     Active Substance: ATROPINE
     Dosage: 0.5 MILLILITER, PM (0.5ML UNIT DOSE PRESERVATIVE FREE, TO BE TAKEN  SUBLINGUALLY 1ML AT NIGHT.,20 UN
     Route: 065
     Dates: start: 20170824
  19. ALBUTEROL [Concomitant]
     Active Substance: ALBUTEROL
     Dosage: UNK, PRN ( 100MICROGRAMS/DOSE INHALER CFC FREE, ONE OR TWO PUFFS TO  BE INHALED FOUR TIMES A DAY WHE
     Route: 055
     Dates: start: 20170612
  20. DOXYCYCLINE [Concomitant]
     Active Substance: DOXYCYCLINE
     Dosage: UNK, QD (TWO TO BE TAKEN ON THE FIRST DAY THEN  ONE TO BE TAKEN EACH DAY,8 CAPSULE  30-MAY-2017 AMOX
     Route: 065
     Dates: start: 20170612
  21. SCOPOLAMINE [Concomitant]
     Active Substance: SCOPOLAMINE
     Dosage: 1 DOSAGE FORM (1MG/72HOURS TRANSDERMAL PATCHES, APPLY ONE PATCH AS DIRECTED,4 PATCH)
     Route: 065
     Dates: start: 20170310
  22. SCOPOLAMINE HYDROBROMIDE [Concomitant]
     Active Substance: SCOPOLAMINE HYDROBROMIDE
     Dosage: UNK (AS DIRECTED,84 TABLET)
     Route: 065
     Dates: start: 20170303
  23. FLUCLOXACILLIN [Concomitant]
     Active Substance: FLUCLOXACILLIN
     Dosage: 1 DOSAGE FORM, QID (ONE TO BE TAKEN FOUR TIMES A DAY,28 CAPSULE)
     Route: 065
     Dates: start: 20150921
  24. FLUCLOXACILLIN [Concomitant]
     Active Substance: FLUCLOXACILLIN
     Dosage: 1 DOSAGE FORM, QID (ONE TO BE TAKEN FOUR TIMES A DAY,20 CAPSULE )
     Route: 065
     Dates: start: 201610
  25. ANUSOL NOS [Concomitant]
     Active Substance: BALSAM PERU\BENZYL BENZOATE\BISMUTH HYDROXIDE\BISMUTH SUBGALLATE\HYDROCORTISONE ACETATE\ZINC OXIDE
     Dosage: UNK, BID (APPLY MORNING AND NIGHT AND AFTER EACH BOWEL MOVEMENT,23 GRAM)
     Route: 065
     Dates: start: 20160914

REACTIONS (16)
  - Mental disorder [Unknown]
  - Neutropenia [Recovered/Resolved]
  - Nasopharyngitis [Unknown]
  - Lymphadenopathy [Unknown]
  - Feeding disorder [Unknown]
  - Oropharyngeal pain [Unknown]
  - Otitis media [Unknown]
  - Drug hypersensitivity [Unknown]
  - Infected dermal cyst [Unknown]
  - Joint injury [Unknown]
  - Toxicity to various agents [Unknown]
  - White blood cell count decreased [Recovered/Resolved]
  - Infection [Unknown]
  - Abscess [Unknown]
  - Intentional product misuse [Unknown]
  - Off label use [Unknown]

NARRATIVE: CASE EVENT DATE: 20140901
